FAERS Safety Report 8553923-6 (Version None)
Quarter: 2012Q3

REPORT INFORMATION
  Report Type: 
  Country: None (occurrence: None)
  Receive Date: 20120725
  Receipt Date: 20120725
  Transmission Date: 20120928
  Serious: No
  Sender: FDA-Public Use
  Company Number: None

PATIENT
  Age: 36 Year
  Sex: Female
  Weight: 90.7194 kg

DRUGS (1)
  1. ZYRTEC [Suspect]
     Indication: SEASONAL ALLERGY
     Dosage: 10 ONCE A DAY BUCCAL
     Route: 002
     Dates: start: 20120401, end: 20120723

REACTIONS (2)
  - PRURITUS [None]
  - DRUG WITHDRAWAL SYNDROME [None]
